FAERS Safety Report 9304378 (Version 1)
Quarter: 2013Q2

REPORT INFORMATION
  Report Type: Spontaneous
  Country: US (occurrence: US)
  Receive Date: 20130522
  Receipt Date: 20130522
  Transmission Date: 20140414
  Serious: Yes (Hospitalization)
  Sender: FDA-Public Use
  Company Number: US-GILEAD-2012-0066823

PATIENT
  Sex: Female

DRUGS (3)
  1. LETAIRIS [Suspect]
     Indication: PULMONARY ARTERIAL HYPERTENSION
     Dosage: 10 MG, QD
     Route: 048
     Dates: start: 20110320
  2. REMODULIN [Concomitant]
  3. REVATIO [Concomitant]

REACTIONS (3)
  - Gastrointestinal haemorrhage [Unknown]
  - Dyspnoea exertional [Unknown]
  - Anaemia [Unknown]
